FAERS Safety Report 10252296 (Version 2)
Quarter: 2014Q2

REPORT INFORMATION
  Report Type: Report from Study
  Country: US (occurrence: US)
  Receive Date: 20140623
  Receipt Date: 20140623
  Transmission Date: 20141212
  Serious: Yes (Hospitalization)
  Sender: FDA-Public Use
  Company Number: PHEH2014US009572

PATIENT
  Age: 11 Year
  Sex: Female
  Weight: 28 kg

DRUGS (1)
  1. TOBI PODHALER [Suspect]
     Indication: CYSTIC FIBROSIS
     Dosage: 112 MG, BID
     Route: 055

REACTIONS (7)
  - Crepitations [Unknown]
  - Clubbing [Unknown]
  - Malaise [Unknown]
  - Fatigue [Unknown]
  - Pulmonary function test abnormal [Recovering/Resolving]
  - Wheezing [Unknown]
  - Cough [Unknown]
